FAERS Safety Report 25009344 (Version 1)
Quarter: 2025Q1

REPORT INFORMATION
  Report Type: Spontaneous
  Country: US (occurrence: US)
  Receive Date: 20250225
  Receipt Date: 20250225
  Transmission Date: 20250409
  Serious: No
  Sender: PFIZER
  Company Number: US-PFIZER INC-202500041436

PATIENT
  Age: 89 Year
  Sex: Male

DRUGS (1)
  1. VYNDAMAX [Suspect]
     Active Substance: TAFAMIDIS
     Dates: start: 202408

REACTIONS (6)
  - Somnolence [Unknown]
  - Dyspnoea [Unknown]
  - Fluid retention [Unknown]
  - Fatigue [Unknown]
  - Product use complaint [Unknown]
  - Product size issue [Unknown]
